FAERS Safety Report 8336914-X (Version None)
Quarter: 2012Q2

REPORT INFORMATION
  Report Type: 
  Country: None (occurrence: None)
  Receive Date: 20120504
  Receipt Date: 20120424
  Transmission Date: 20120825
  Serious: Yes (Hospitalization)
  Sender: FDA-Public Use
  Company Number: FR-SANOFI-AVENTIS-2012SA028426

PATIENT
  Age: 76 Year
  Sex: Female

DRUGS (7)
  1. ALDACTONE [Concomitant]
     Route: 048
  2. APROVEL [Concomitant]
     Route: 048
  3. LASIX [Concomitant]
     Route: 048
     Dates: end: 20020202
  4. BISOPROLOL FUMARATE [Concomitant]
     Route: 048
  5. COUMADIN [Concomitant]
     Route: 048
     Dates: end: 20120210
  6. DIGOXIN [Concomitant]
     Route: 048
     Dates: start: 20120203, end: 20120211
  7. LASIX [Suspect]
     Route: 048
     Dates: start: 20020203, end: 20020210

REACTIONS (3)
  - RENAL FAILURE [None]
  - INTERNATIONAL NORMALISED RATIO INCREASED [None]
  - DEHYDRATION [None]
